FAERS Safety Report 8960424 (Version 1)
Quarter: 2012Q4

REPORT INFORMATION
  Report Type: 
  Country: US (occurrence: US)
  Receive Date: 20121212
  Receipt Date: 20121212
  Transmission Date: 20130627
  Serious: Yes (Hospitalization)
  Sender: FDA-Public Use
  Company Number: US-BAYER-2012-129329

PATIENT
  Age: 25 Year
  Sex: Female

DRUGS (16)
  1. YASMIN [Suspect]
  2. GLUCOPHAGE [Concomitant]
     Dosage: 500 mg, BID
     Route: 048
     Dates: start: 20080314
  3. GLUCOPHAGE [Concomitant]
     Dosage: 500 mg, UNK
     Route: 048
     Dates: start: 20080505
  4. GLUCOPHAGE [Concomitant]
     Dosage: 500 mg, UNK
     Route: 048
     Dates: start: 20080606
  5. ZOLOFT [Concomitant]
     Dosage: 100 mg, per day
     Route: 048
     Dates: start: 20080314
  6. ZOLOFT [Concomitant]
     Dosage: 100 mg, per day
     Route: 048
     Dates: start: 20080404
  7. ZOLOFT [Concomitant]
     Dosage: 100 mg, per day
     Route: 048
     Dates: start: 20080506
  8. MOTRIN [Concomitant]
     Indication: PAIN
     Dosage: 600 mg, TID, as needed
     Route: 048
     Dates: start: 20080517
  9. ULTRAM [Concomitant]
     Indication: PAIN
     Dosage: 50-100 mg every 6 hours
     Route: 048
     Dates: start: 20080517
  10. LISINOPRIL [Concomitant]
     Dosage: 5 mg, per day
     Route: 048
     Dates: start: 20080314
  11. LISINOPRIL [Concomitant]
     Dosage: 5 mg, per day
     Route: 048
     Dates: start: 20080408
  12. LISINOPRIL [Concomitant]
     Dosage: 5 mg, per day
     Dates: start: 20080527
  13. LISINOPRIL [Concomitant]
     Dosage: 5 mg, per day
     Route: 048
     Dates: start: 20080626
  14. DARVOCET [Concomitant]
     Indication: PAIN
     Dosage: 100-650
  15. FLEXERIL [Concomitant]
     Indication: PAIN
     Dosage: 10 mg, UNK
     Dates: start: 20080429
  16. ATENOLOL [Concomitant]

REACTIONS (1)
  - Pulmonary embolism [Recovered/Resolved]
